FAERS Safety Report 15204766 (Version 2)
Quarter: 2018Q4

REPORT INFORMATION
  Report Type: Report from Study
  Country: US (occurrence: US)
  Receive Date: 20180726
  Receipt Date: 20181004
  Transmission Date: 20190204
  Serious: No
  Sender: FDA-Public Use
  Company Number: PHEH2018US030249

PATIENT
  Sex: Male

DRUGS (2)
  1. ENTRESTO [Suspect]
     Active Substance: SACUBITRIL\VALSARTAN
     Indication: PRODUCT USED FOR UNKNOWN INDICATION
     Dosage: 50 MG (SACUBITRIL 24 MG/ VALSARTAN 26 MGSACUBITRIL 24 MG/ VALSARTAN 26 MG), UNK
     Route: 065
     Dates: start: 201804
  2. ENTRESTO [Suspect]
     Active Substance: SACUBITRIL\VALSARTAN
     Dosage: 100 MG (SACUBITRIL 49 MG/ VALSARTAN 51 MG), UNK
     Route: 065

REACTIONS (1)
  - Dyspnoea [Unknown]
